FAERS Safety Report 6030900-0 (Version None)
Quarter: 2009Q1

REPORT INFORMATION
  Report Type: 
  Country: None (occurrence: None)
  Receive Date: 20090106
  Receipt Date: 20081230
  Transmission Date: 20090719
  Serious: Yes (Death)
  Sender: FDA-Public Use
  Company Number: MEDI-0007692

PATIENT
  Age: 4 Month
  Sex: Male
  Weight: 4.3908 kg

DRUGS (1)
  1. SYNAGIS [Suspect]
     Dosage: 15 MG/KG, INTRAMUSCULAR INJECTION
     Route: 030
     Dates: start: 20081125, end: 20081223

REACTIONS (2)
  - ASPIRATION [None]
  - RESPIRATORY ARREST [None]
